FAERS Safety Report 23058076 (Version 2)
Quarter: 2023Q4

REPORT INFORMATION
  Report Type: Spontaneous
  Country: NL (occurrence: NL)
  Receive Date: 20231012
  Receipt Date: 20231031
  Transmission Date: 20240110
  Serious: Yes (Other)
  Sender: FDA-Public Use
  Company Number: None

PATIENT
  Age: 60 Year
  Sex: Female

DRUGS (13)
  1. PRALUENT [Suspect]
     Active Substance: ALIROCUMAB
     Indication: Blood cholesterol
     Dosage: 1 DF, Q4W
     Dates: start: 20230807
  2. ESCITALOPRAM [Concomitant]
     Active Substance: ESCITALOPRAM OXALATE
     Dosage: 6 GTT DROPS, QD
  3. ATENOLOL [Concomitant]
     Active Substance: ATENOLOL
     Dosage: UNK, BID
  4. HYDROXOCOBALAMIN [Concomitant]
     Active Substance: HYDROXOCOBALAMIN
     Dosage: 2 DF, QW
     Dates: start: 20210205
  5. OXAZEPAM [Concomitant]
     Active Substance: OXAZEPAM
     Dosage: 4 DF, QD, IF NECESSARY
  6. ALBUTEROL [Concomitant]
     Active Substance: ALBUTEROL
     Dosage: INHALATION; 3 X PER DAY 2 DOSES
  7. CLOPIDOGREL BISULFATE [Concomitant]
     Active Substance: CLOPIDOGREL BISULFATE
     Dosage: 1 X PER DAY 1 PIECE OF CYP2C19, IF NORMAL, LIFELONG INDICATION, FOR 365 DAY(S); STOP DATE: 13-06-202
  8. ROSUVASTATIN [Concomitant]
     Active Substance: ROSUVASTATIN
     Dosage: 1 DF, QD
  9. SPIRONOLACTONE [Concomitant]
     Active Substance: SPIRONOLACTONE
     Dosage: 2 DF, BID
     Route: 048
  10. BECLOMETHASONE DIPROPIONATE [Concomitant]
     Active Substance: BECLOMETHASONE DIPROPIONATE
     Dosage: 2 X PER DAY 1 NOT APPLICABLE IN BOTH NOSTRILS
     Route: 045
  11. FUROSEMIDE [Concomitant]
     Active Substance: FUROSEMIDE
     Dosage: 1 DF, QD
     Route: 048
  12. HYALURONIC ACID;MACROGOL [Concomitant]
     Dosage: 1 GTT DROPS, QID
  13. EZETIMIBE [Concomitant]
     Active Substance: EZETIMIBE
     Dosage: 10 MG, QD

REACTIONS (5)
  - Diverticulitis [Recovering/Resolving]
  - Condition aggravated [Recovering/Resolving]
  - Diarrhoea [Recovering/Resolving]
  - Neuralgia [Unknown]
  - Cough [Not Recovered/Not Resolved]
